FAERS Safety Report 9698320 (Version 1)
Quarter: 2013Q4

REPORT INFORMATION
  Report Type: Spontaneous
  Country: US (occurrence: US)
  Receive Date: 20131120
  Receipt Date: 20131120
  Transmission Date: 20140711
  Serious: Yes (Other)
  Sender: FDA-Public Use
  Company Number: US-BAYER-2013-139830

PATIENT
  Age: 28 Year
  Sex: Female

DRUGS (2)
  1. MIRENA [Suspect]
     Indication: CONTRACEPTION
     Dosage: UNK
     Dates: start: 20130731, end: 20131108
  2. MIRENA [Suspect]
     Indication: MENORRHAGIA

REACTIONS (4)
  - Genital haemorrhage [None]
  - Abdominal pain lower [None]
  - Vaginal discharge [None]
  - Device expulsion [None]
